FAERS Safety Report 15722543 (Version 1)
Quarter: 2018Q4

REPORT INFORMATION
  Report Type: Spontaneous
  Country: IL (occurrence: IL)
  Receive Date: 20181214
  Receipt Date: 20181214
  Transmission Date: 20190205
  Serious: Yes (Hospitalization)
  Sender: FDA-Public Use
  Company Number: IL-AMGEN-ISRSP2018177574

PATIENT
  Age: 44 Year
  Sex: Female

DRUGS (4)
  1. ETOPOSIDE. [Concomitant]
     Active Substance: ETOPOSIDE
     Dosage: UNK
  2. CARBOPLATIN. [Concomitant]
     Active Substance: CARBOPLATIN
     Dosage: UNK
  3. NEULASTIM [Suspect]
     Active Substance: PEGFILGRASTIM
     Indication: PRODUCT USED FOR UNKNOWN INDICATION
     Dosage: UNK
     Route: 065
  4. IFOSFAMIDE. [Concomitant]
     Active Substance: IFOSFAMIDE
     Dosage: UNK

REACTIONS (5)
  - Unevaluable event [Unknown]
  - Rash maculo-papular [Unknown]
  - Pruritus [Unknown]
  - Nausea [Unknown]
  - Dizziness [Unknown]
